FAERS Safety Report 8504028-1 (Version None)
Quarter: 2012Q3

REPORT INFORMATION
  Report Type: 
  Country: None (occurrence: None)
  Receive Date: 20120711
  Receipt Date: 20120629
  Transmission Date: 20120928
  Serious: Yes (Hospitalization, Other)
  Sender: FDA-Public Use
  Company Number: US-ELI_LILLY_AND_COMPANY-US201207000251

PATIENT
  Age: 69 Year
  Sex: Female
  Weight: 122.45 kg

DRUGS (3)
  1. HUMULIN R [Suspect]
     Indication: DIABETES MELLITUS
     Dosage: 24 U, EACH MORNING
     Dates: start: 20000101
  2. METFORMIN HCL [Concomitant]
  3. HUMULIN R [Suspect]
     Dosage: 18 U, EACH EVENING
     Dates: start: 20000101

REACTIONS (5)
  - FOAMING AT MOUTH [None]
  - DISCOMFORT [None]
  - HYPOGLYCAEMIC UNCONSCIOUSNESS [None]
  - BREAST CANCER [None]
  - BLOOD GLUCOSE INCREASED [None]
